FAERS Safety Report 5724300-8 (Version None)
Quarter: 2008Q2

REPORT INFORMATION
  Report Type: 
  Country: None (occurrence: None)
  Receive Date: 20080428
  Receipt Date: 20080415
  Transmission Date: 20081010
  Serious: Yes (Hospitalization)
  Sender: FDA-Public Use
  Company Number: 2008AL002303

PATIENT
  Sex: Female

DRUGS (6)
  1. GABAPENTIN [Suspect]
     Indication: NEURALGIA
  2. ST. JOHN'S WORT [Concomitant]
  3. PETHIDINE [Concomitant]
  4. TRAMADOL HCL [Concomitant]
  5. ACETAMINOPHEN [Concomitant]
  6. HORMONAL CONTRACEPTIVES FOR SYSTEMIC USE [Concomitant]

REACTIONS (8)
  - CONFUSIONAL STATE [None]
  - DRUG INTERACTION [None]
  - HALLUCINATION, VISUAL [None]
  - LOWER LIMB FRACTURE [None]
  - PYREXIA [None]
  - ROAD TRAFFIC ACCIDENT [None]
  - SEROTONIN SYNDROME [None]
  - TREMOR [None]
